FAERS Safety Report 10608998 (Version 2)
Quarter: 2015Q1

REPORT INFORMATION
  Report Type: Spontaneous
  Country: JP (occurrence: JP)
  Receive Date: 20141125
  Receipt Date: 20150121
  Transmission Date: 20150720
  Serious: Yes (Hospitalization)
  Sender: FDA-Public Use
  Company Number: PHHY2014JP153407

PATIENT
  Age: 68 Year
  Sex: Male

DRUGS (4)
  1. RIFAMPICIN SANDOZ [Suspect]
     Active Substance: RIFAMPIN
     Indication: PNEUMONIA LEGIONELLA
     Dosage: 600 MG, QD
     Route: 048
     Dates: start: 20121019
  2. AZITHROMYCIN [Concomitant]
     Active Substance: AZITHROMYCIN ANHYDROUS
     Indication: PNEUMONIA LEGIONELLA
     Dosage: 500 MG, UNK
     Route: 041
     Dates: start: 20121019, end: 20121101
  3. CEFTRIAXONE. [Suspect]
     Active Substance: CEFTRIAXONE
     Indication: PNEUMONIA LEGIONELLA
     Dosage: 2 G, QD
     Route: 041
     Dates: start: 20121019
  4. LEVOFLOXACIN. [Concomitant]
     Active Substance: LEVOFLOXACIN
     Indication: PNEUMONIA LEGIONELLA
     Dosage: 500 MG, UNK
     Route: 041
     Dates: start: 20121019

REACTIONS (1)
  - Liver disorder [Recovering/Resolving]

NARRATIVE: CASE EVENT DATE: 20121019
